FAERS Safety Report 10736952 (Version 2)
Quarter: 2015Q1

REPORT INFORMATION
  Report Type: Spontaneous
  Country: US (occurrence: US)
  Receive Date: 20150126
  Receipt Date: 20150324
  Transmission Date: 20150721
  Serious: Yes (Other)
  Sender: FDA-Public Use
  Company Number: US-CELGENEUS-USA-2015010512

PATIENT
  Sex: Male

DRUGS (7)
  1. AVASTIN [Concomitant]
     Active Substance: BEVACIZUMAB
     Indication: MEDULLOBLASTOMA
     Route: 065
     Dates: start: 201309
  2. FENOFIBRATE. [Concomitant]
     Active Substance: FENOFIBRATE
     Indication: MEDULLOBLASTOMA
     Route: 065
     Dates: start: 201309
  3. THALOMID [Suspect]
     Active Substance: THALIDOMIDE
     Route: 048
     Dates: start: 201407
  4. ETOPOSIDE. [Concomitant]
     Active Substance: ETOPOSIDE
     Indication: MEDULLOBLASTOMA
     Route: 065
     Dates: start: 201309
  5. LIPOSOMAL CYTARABINE [Concomitant]
     Active Substance: CYTARABINE
     Indication: MEDULLOBLASTOMA
     Route: 065
     Dates: start: 201309
  6. THALOMID [Suspect]
     Active Substance: THALIDOMIDE
     Indication: MEDULLOBLASTOMA
     Route: 048
     Dates: start: 201309, end: 2013
  7. THALOMID [Suspect]
     Active Substance: THALIDOMIDE
     Route: 048
     Dates: start: 201310

REACTIONS (2)
  - Partial seizures [Recovered/Resolved]
  - Medulloblastoma recurrent [Not Recovered/Not Resolved]
